FAERS Safety Report 4639839-6 (Version None)
Quarter: 2005Q2

REPORT INFORMATION
  Report Type: 
  Country: None (occurrence: None)
  Receive Date: 20050415
  Receipt Date: 20050404
  Transmission Date: 20051028
  Serious: Yes (Hospitalization)
  Sender: FDA-Public Use
  Company Number: 05P-150-0293281-00

PATIENT
  Age: 68 Year
  Sex: Female

DRUGS (6)
  1. AKINETON [Suspect]
     Indication: PROPHYLAXIS
     Dosage: 2 MG, 2 IN 1 D, PER ORAL
     Route: 048
     Dates: start: 20050211, end: 20050214
  2. AKINETON [Suspect]
     Indication: TREMOR
     Dosage: 2 MG, 2 IN 1 D, PER ORAL
     Route: 048
     Dates: start: 20050211, end: 20050214
  3. ISOPHANE INSULIN [Concomitant]
  4. FLUANXOL [Concomitant]
  5. ACETYL SALICYLIC ACID USP BAT [Concomitant]
  6. CEFADROXIL [Concomitant]

REACTIONS (1)
  - RASH [None]
